FAERS Safety Report 10472889 (Version 1)
Quarter: 2014Q3

REPORT INFORMATION
  Report Type: Report from Study
  Country: US (occurrence: US)
  Receive Date: 20140924
  Receipt Date: 20140924
  Transmission Date: 20150326
  Serious: Yes (Other)
  Sender: FDA-Public Use
  Company Number: US-ABBVIE-14K-163-1285814-00

PATIENT
  Sex: Male

DRUGS (3)
  1. HUMIRA [Suspect]
     Active Substance: ADALIMUMAB
     Indication: PSORIASIS
     Dates: start: 2012
  2. HUMIRA [Suspect]
     Active Substance: ADALIMUMAB
     Indication: PSORIATIC ARTHROPATHY
  3. HUMIRA [Suspect]
     Active Substance: ADALIMUMAB

REACTIONS (7)
  - Contusion [Not Recovered/Not Resolved]
  - Joint stiffness [Unknown]
  - Laboratory test abnormal [Unknown]
  - Arthralgia [Not Recovered/Not Resolved]
  - Joint injury [Unknown]
  - Umbilical hernia [Unknown]
  - Psoriatic arthropathy [Not Recovered/Not Resolved]

NARRATIVE: CASE EVENT DATE: 2010
